FAERS Safety Report 18405233 (Version 1)
Quarter: 2020Q4

REPORT INFORMATION
  Report Type: Spontaneous
  Country: US (occurrence: US)
  Receive Date: 20201020
  Receipt Date: 20201020
  Transmission Date: 20210114
  Serious: Yes (Hospitalization)
  Sender: FDA-Public Use
  Company Number: None

PATIENT
  Age: 22 Year
  Sex: Male

DRUGS (3)
  1. HUMIRA [Suspect]
     Active Substance: ADALIMUMAB
     Indication: COLITIS ULCERATIVE
     Dosage: ?          OTHER FREQUENCY:EVERY 14 DAYS;?
     Route: 058
     Dates: start: 20171006
  2. LIALDA [Concomitant]
     Active Substance: MESALAMINE
     Dates: start: 20160608
  3. FEXOFENADINE TAB 60MG [Concomitant]
     Dates: start: 20160608

REACTIONS (1)
  - Cyst removal [None]

NARRATIVE: CASE EVENT DATE: 20201013
